FAERS Safety Report 16975528 (Version 1)
Quarter: 2019Q4

REPORT INFORMATION
  Report Type: Spontaneous
  Country: US (occurrence: US)
  Receive Date: 20191030
  Receipt Date: 20191030
  Transmission Date: 20200122
  Serious: No
  Sender: FDA-Public Use
  Company Number: US-ASTRAZENECA-2019SF39909

PATIENT
  Sex: Female

DRUGS (1)
  1. BRILINTA [Suspect]
     Active Substance: TICAGRELOR
     Indication: ANGIOPLASTY
     Dosage: 90.0UG UNKNOWN
     Route: 048
     Dates: start: 201812

REACTIONS (1)
  - Muscle spasms [Unknown]
